FAERS Safety Report 8182381 (Version 3)
Quarter: 2015Q3

REPORT INFORMATION
  Report Type: Spontaneous
  Country: US (occurrence: US)
  Receive Date: 20111014
  Receipt Date: 20150903
  Transmission Date: 20151125
  Serious: Yes (Other)
  Sender: FDA-Public Use
  Company Number: US-ROCHE-1001006

PATIENT
  Sex: Female
  Weight: 72.19 kg

DRUGS (4)
  1. ATARAX [Concomitant]
     Active Substance: HYDROXYZINE\HYDROXYZINE HYDROCHLORIDE
     Route: 065
     Dates: start: 20120306
  2. STEROID CREAM (UNK INGREDIENTS) [Concomitant]
     Route: 065
     Dates: start: 20120306
  3. PEGASYS [Suspect]
     Active Substance: PEGINTERFERON ALFA-2A
     Indication: CHRONIC HEPATITIS C
     Route: 065
     Dates: start: 20110919
  4. RIBASPHERE RIBAPAK [Suspect]
     Active Substance: RIBAVIRIN
     Indication: CHRONIC HEPATITIS C
     Dosage: DIVIDED DOSES
     Route: 065
     Dates: start: 20110919

REACTIONS (4)
  - Musculoskeletal pain [Unknown]
  - Dizziness [Unknown]
  - Pruritus generalised [Recovered/Resolved]
  - Rash [Recovered/Resolved]
